FAERS Safety Report 14107582 (Version 1)
Quarter: 2017Q4

REPORT INFORMATION
  Report Type: Spontaneous
  Country: US (occurrence: US)
  Receive Date: 20171019
  Receipt Date: 20171019
  Transmission Date: 20180321
  Serious: No
  Sender: FDA-Public Use
  Company Number: US-NEUROCRINE BIOSCIENCES INC.-2017NBI00516

PATIENT
  Age: 37 Year
  Sex: Male
  Weight: 80.81 kg

DRUGS (4)
  1. PRIMIDONE. [Concomitant]
     Active Substance: PRIMIDONE
     Indication: TREMOR
     Dosage: IN MORNING
  2. PRIMIDONE. [Concomitant]
     Active Substance: PRIMIDONE
     Dosage: AT BEDTIME
  3. INGREZZA [Suspect]
     Active Substance: VALBENAZINE
     Indication: TARDIVE DYSKINESIA
     Route: 048
     Dates: start: 20170718, end: 20170724
  4. INGREZZA [Suspect]
     Active Substance: VALBENAZINE
     Route: 048
     Dates: start: 20170725, end: 201708

REACTIONS (3)
  - Drug ineffective [Unknown]
  - Impatience [Unknown]
  - Tremor [Unknown]

NARRATIVE: CASE EVENT DATE: 201707
